FAERS Safety Report 14820205 (Version 1)
Quarter: 2018Q2

REPORT INFORMATION
  Report Type: Spontaneous
  Country: US (occurrence: US)
  Receive Date: 20180427
  Receipt Date: 20180427
  Transmission Date: 20180711
  Serious: Yes (Other)
  Sender: FDA-Public Use
  Company Number: US-SCIEGEN PHARMACEUTICALS INC-2018SCILIT00255

PATIENT
  Age: 67 Year
  Sex: Female

DRUGS (13)
  1. GABAPENTIN TABLETS,USP [Suspect]
     Active Substance: GABAPENTIN
     Dosage: UNK
     Route: 065
  2. SIMVASTATIN. [Concomitant]
     Active Substance: SIMVASTATIN
     Indication: PRODUCT USED FOR UNKNOWN INDICATION
     Dosage: UNK
     Route: 065
  3. GLIMEPIRIDE. [Concomitant]
     Active Substance: GLIMEPIRIDE
     Indication: PRODUCT USED FOR UNKNOWN INDICATION
     Dosage: UNK
     Route: 005
  4. GABAPENTIN TABLETS,USP [Suspect]
     Active Substance: GABAPENTIN
     Indication: PARAESTHESIA
     Dosage: 1800 MG PER DAY
     Route: 065
  5. ALPRAZOLAM. [Concomitant]
     Active Substance: ALPRAZOLAM
     Indication: PRODUCT USED FOR UNKNOWN INDICATION
     Dosage: UNK
     Route: 065
  6. DULOXETINE. [Concomitant]
     Active Substance: DULOXETINE
     Indication: PARAESTHESIA
     Dosage: 20 MG PER DAY
     Route: 065
  7. DULOXETINE. [Concomitant]
     Active Substance: DULOXETINE
     Dosage: 40 MG 3 TIMES PER DAY
     Route: 065
  8. GABAPENTIN TABLETS,USP [Suspect]
     Active Substance: GABAPENTIN
     Dosage: SUPLEMENTAL DOSE 300 MG UPTO ONCE PER DAY
     Route: 065
  9. ASPIRIN. [Concomitant]
     Active Substance: ASPIRIN
     Indication: PRODUCT USED FOR UNKNOWN INDICATION
     Dosage: UNK
     Route: 065
  10. LISINOPRIL. [Concomitant]
     Active Substance: LISINOPRIL
     Indication: PRODUCT USED FOR UNKNOWN INDICATION
     Dosage: UNK
     Route: 065
  11. GABAPENTIN TABLETS,USP [Suspect]
     Active Substance: GABAPENTIN
     Dosage: UNK
     Route: 065
  12. METFORMIN [Concomitant]
     Active Substance: METFORMIN HYDROCHLORIDE
     Indication: PRODUCT USED FOR UNKNOWN INDICATION
     Dosage: UNK
     Route: 065
  13. DULOXETINE. [Concomitant]
     Active Substance: DULOXETINE
     Dosage: 30 MG TWICE PER DAY
     Route: 065

REACTIONS (3)
  - Drug dependence [Recovered/Resolved]
  - Phobia [Recovered/Resolved]
  - Product use in unapproved indication [None]
